FAERS Safety Report 9482396 (Version 1)
Quarter: 2013Q3

REPORT INFORMATION
  Report Type: Spontaneous
  Country: AU (occurrence: AU)
  Receive Date: 20130828
  Receipt Date: 20130828
  Transmission Date: 20140515
  Serious: Yes (Hospitalization, Other)
  Sender: FDA-Public Use
  Company Number: AU-PFIZER INC-2013246135

PATIENT
  Sex: Female

DRUGS (1)
  1. LYRICA [Suspect]
     Indication: HERPES ZOSTER
     Dosage: 25MG IN THE MORNING AND 75MG AT NIGHT
     Dates: start: 201306

REACTIONS (4)
  - Muscular weakness [Unknown]
  - Dehydration [Unknown]
  - Muscle spasms [Unknown]
  - Malaise [Unknown]
